FAERS Safety Report 14467622 (Version 1)
Quarter: 2018Q1

REPORT INFORMATION
  Report Type: Report from Study
  Country: US (occurrence: US)
  Receive Date: 20180131
  Receipt Date: 20180131
  Transmission Date: 20180509
  Serious: No
  Sender: FDA-Public Use
  Company Number: PHEH2018US003271

PATIENT
  Sex: Female

DRUGS (1)
  1. GILENYA [Suspect]
     Active Substance: FINGOLIMOD HYDROCHLORIDE
     Indication: PRODUCT USED FOR UNKNOWN INDICATION
     Dosage: 0.5 MG, QD
     Route: 048
     Dates: start: 20171121

REACTIONS (7)
  - Sinus pain [Unknown]
  - Eye pain [Unknown]
  - Oropharyngeal pain [Unknown]
  - Headache [Unknown]
  - Sensory disturbance [Unknown]
  - White blood cell count decreased [Unknown]
  - Peripheral coldness [Unknown]
